FAERS Safety Report 12280588 (Version 1)
Quarter: 2016Q2

REPORT INFORMATION
  Report Type: Spontaneous
  Country: US (occurrence: None)
  Receive Date: 20160418
  Receipt Date: 20160418
  Transmission Date: 20160815
  Serious: No
  Sender: FDA-Public Use
  Company Number: None

PATIENT
  Age: 47 Year
  Sex: Female
  Weight: 60.78 kg

DRUGS (4)
  1. FAMVIR [Concomitant]
     Active Substance: FAMCICLOVIR
  2. PROTONIX [Concomitant]
     Active Substance: PANTOPRAZOLE SODIUM
  3. TYLENOL [Concomitant]
     Active Substance: ACETAMINOPHEN
  4. NITROFURANTION [Suspect]
     Active Substance: NITROFURANTOIN
     Indication: URINARY TRACT INFECTION
     Route: 048
     Dates: start: 20160329, end: 20160404

REACTIONS (4)
  - Bacterial infection [None]
  - Dysuria [None]
  - Haematuria [None]
  - Therapeutic response decreased [None]

NARRATIVE: CASE EVENT DATE: 20160411
